FAERS Safety Report 5712607-X (Version None)
Quarter: 2008Q2

REPORT INFORMATION
  Report Type: 
  Country: None (occurrence: None)
  Receive Date: 20080422
  Receipt Date: 20080414
  Transmission Date: 20081010
  Serious: Yes (Other)
  Sender: FDA-Public Use
  Company Number: BR-ASTRAZENECA-2008UW07729

PATIENT
  Age: 61 Year
  Sex: Female
  Weight: 68 kg

DRUGS (2)
  1. ARIMIDEX [Suspect]
     Indication: BREAST CANCER
     Route: 048
     Dates: start: 20060701
  2. SIMVASTATIN [Concomitant]
     Route: 048
     Dates: start: 20060101

REACTIONS (5)
  - BONE PAIN [None]
  - HYPERTENSION [None]
  - MYALGIA [None]
  - OSTEOPENIA [None]
  - VARICOSE VEIN [None]
